FAERS Safety Report 7040879-0 (Version None)
Quarter: 2010Q4

REPORT INFORMATION
  Report Type: 
  Country: None (occurrence: None)
  Receive Date: 20101013
  Receipt Date: 20101005
  Transmission Date: 20110411
  Serious: Yes (Other)
  Sender: FDA-Public Use
  Company Number: DE-BAYER-201041715GPV

PATIENT
  Sex: Female

DRUGS (1)
  1. QLAIRA [Suspect]
     Route: 048

REACTIONS (2)
  - DIZZINESS [None]
  - WOLFF-PARKINSON-WHITE SYNDROME [None]
